FAERS Safety Report 21076593 (Version 1)
Quarter: 2022Q3

REPORT INFORMATION
  Report Type: Spontaneous
  Country: CN (occurrence: CN)
  Receive Date: 20220713
  Receipt Date: 20220713
  Transmission Date: 20221027
  Serious: Yes (Other)
  Sender: FDA-Public Use
  Company Number: CN-PFIZER INC-PV202200020471

PATIENT
  Age: 15 Year
  Sex: Female
  Weight: 36.2 kg

DRUGS (2)
  1. CYTARABINE [Suspect]
     Active Substance: CYTARABINE
     Indication: Chemotherapy
     Dosage: 1.24 G, 2X/DAY
     Route: 041
     Dates: start: 20220527, end: 20220530
  2. CYTARABINE [Suspect]
     Active Substance: CYTARABINE
     Indication: Neoplasm malignant

REACTIONS (1)
  - Myelosuppression [Recovering/Resolving]

NARRATIVE: CASE EVENT DATE: 20220603
